FAERS Safety Report 25802207 (Version 1)
Quarter: 2025Q3

REPORT INFORMATION
  Report Type: Spontaneous
  Country: US (occurrence: None)
  Receive Date: 20250913
  Receipt Date: 20250913
  Transmission Date: 20251021
  Serious: Yes (Other)
  Sender: FDA-CTU
  Company Number: None

PATIENT
  Age: 69 Year
  Sex: Female
  Weight: 102.6 kg

DRUGS (21)
  1. CLONIDINE HYDROCHLORIDE [Suspect]
     Active Substance: CLONIDINE HYDROCHLORIDE
     Indication: Hypertension
     Dosage: OTHER QUANTITY : 1 TABLET(S);?FREQUENCY : TWICE A DAY;?
     Route: 048
     Dates: start: 20250731, end: 20250814
  2. CALCIUM CITRATE [Concomitant]
     Active Substance: CALCIUM CITRATE
  3. DULOXETINE [Concomitant]
     Active Substance: DULOXETINE
  4. ELIQUIS [Concomitant]
     Active Substance: APIXABAN
  5. ZETIA [Concomitant]
     Active Substance: EZETIMIBE
  6. FARXIGA [Concomitant]
     Active Substance: DAPAGLIFLOZIN PROPANEDIOL
  7. FENOFIBRATE [Concomitant]
     Active Substance: FENOFIBRATE
  8. GABAPENTIN [Concomitant]
     Active Substance: GABAPENTIN
  9. GLYCOPYRROLATE [Concomitant]
     Active Substance: GLYCOPYRROLATE
  10. LEVOTHYROXINE [Concomitant]
     Active Substance: LEVOTHYROXINE
  11. LOSARTAN POTASSIUM [Concomitant]
     Active Substance: LOSARTAN POTASSIUM
  12. MESALAMINE [Concomitant]
     Active Substance: MESALAMINE
  13. MIEBO [Concomitant]
     Active Substance: PERFLUOROHEXYLOCTANE
  14. LONITEN [Concomitant]
     Active Substance: MINOXIDIL
  15. OMEPRAZOLE [Concomitant]
     Active Substance: OMEPRAZOLE
  16. SPIRONOLACTONE [Concomitant]
     Active Substance: SPIRONOLACTONE
  17. ZEPBOUND [Concomitant]
     Active Substance: TIRZEPATIDE
  18. VITAMIN D3 [Concomitant]
     Active Substance: CHOLECALCIFEROL
  19. MELATONIN [Concomitant]
     Active Substance: MELATONIN
  20. CLARITIN [Concomitant]
     Active Substance: LORATADINE
  21. UNISOM SLEEPTABS [Concomitant]
     Active Substance: DOXYLAMINE SUCCINATE

REACTIONS (3)
  - Hospitalisation [None]
  - Therapy change [None]
  - Hypersensitivity [None]

NARRATIVE: CASE EVENT DATE: 20250802
